FAERS Safety Report 4472693-4 (Version None)
Quarter: 2004Q4

REPORT INFORMATION
  Report Type: 
  Country: None (occurrence: None)
  Receive Date: 20041013
  Receipt Date: 20041004
  Transmission Date: 20050328
  Serious: Yes (Death)
  Sender: FDA-Public Use
  Company Number: US-JNJFOC-20041001494

PATIENT
  Sex: Female

DRUGS (14)
  1. DURAGESIC [Suspect]
     Indication: CANCER PAIN
     Route: 062
  2. DIGOXIN [Concomitant]
     Route: 049
  3. MAXZIDE [Concomitant]
     Route: 049
  4. MAXZIDE [Concomitant]
     Route: 049
  5. ATENOLOL [Concomitant]
     Route: 049
  6. OXYCODONE HCL [Concomitant]
     Route: 049
  7. COMBIVENT [Concomitant]
     Route: 055
  8. COMBIVENT [Concomitant]
     Dosage: TWO PUFFS FOUR TIMES A DAY.
     Route: 055
  9. FLOVENT [Concomitant]
     Route: 055
  10. COUMADIN [Concomitant]
     Route: 049
  11. COUMADIN [Concomitant]
     Route: 049
  12. MEGESTROL [Concomitant]
     Route: 049
  13. MIRALAX [Concomitant]
     Route: 049
  14. PROTONIX [Concomitant]
     Route: 049

REACTIONS (1)
  - DEATH [None]
